FAERS Safety Report 16657249 (Version 1)
Quarter: 2019Q3

REPORT INFORMATION
  Report Type: Spontaneous
  Country: US (occurrence: US)
  Receive Date: 20190801
  Receipt Date: 20190801
  Transmission Date: 20191004
  Serious: No
  Sender: FDA-Public Use
  Company Number: US-JNJFOC-20190743535

PATIENT
  Sex: Female
  Weight: 83.99 kg

DRUGS (12)
  1. MONONESSA [Suspect]
     Active Substance: ETHINYL ESTRADIOL\NORGESTIMATE
     Indication: POLYCYSTIC OVARIES
     Route: 048
  2. KEPPRA [Concomitant]
     Active Substance: LEVETIRACETAM
     Route: 048
  3. TEGRETOL [Concomitant]
     Active Substance: CARBAMAZEPINE
     Route: 048
  4. SINGULAIR [Concomitant]
     Active Substance: MONTELUKAST SODIUM
     Indication: MULTIPLE ALLERGIES
     Dosage: AS NEEDED
     Route: 065
  5. METFORMIN [Concomitant]
     Active Substance: METFORMIN HYDROCHLORIDE
     Indication: POLYCYSTIC OVARIES
     Route: 048
  6. METFORMIN [Concomitant]
     Active Substance: METFORMIN HYDROCHLORIDE
     Route: 048
  7. VITAMIN D                          /00318501/ [Concomitant]
     Active Substance: CHOLECALCIFEROL
     Route: 048
  8. PROPANOLOL                         /00030001/ [Concomitant]
     Active Substance: PROPRANOLOL HYDROCHLORIDE
     Indication: SEIZURE
     Route: 048
  9. ORTHO CYCLEN [Suspect]
     Active Substance: ETHINYL ESTRADIOL\NORGESTIMATE
     Indication: POLYCYSTIC OVARIES
     Route: 048
  10. AMLODIPINE [Concomitant]
     Active Substance: AMLODIPINE BESYLATE
     Indication: BLOOD PRESSURE MEASUREMENT
     Route: 048
  11. BENTYL [Concomitant]
     Active Substance: DICYCLOMINE HYDROCHLORIDE
     Route: 048
  12. PEPCID [Concomitant]
     Active Substance: FAMOTIDINE
     Route: 048

REACTIONS (3)
  - Off label use [Unknown]
  - Abdominal pain [Recovered/Resolved]
  - Product use in unapproved indication [Unknown]
